FAERS Safety Report 15986861 (Version 1)
Quarter: 2019Q1

REPORT INFORMATION
  Report Type: Spontaneous
  Country: FR (occurrence: FR)
  Receive Date: 20190220
  Receipt Date: 20190220
  Transmission Date: 20190418
  Serious: Yes (Hospitalization, Other)
  Sender: FDA-Public Use
  Company Number: FR-BRISTOL-MYERS SQUIBB COMPANY-BMS-2019-015960

PATIENT
  Age: 71 Year
  Sex: Female
  Weight: 96 kg

DRUGS (1)
  1. ELIQUIS [Suspect]
     Active Substance: APIXABAN
     Indication: CEREBROVASCULAR ACCIDENT PROPHYLAXIS
     Dosage: 5 MG PER DAY, UNK
     Route: 048
     Dates: start: 20181116, end: 20181120

REACTIONS (1)
  - Atheroembolism [Recovered/Resolved]

NARRATIVE: CASE EVENT DATE: 20181120
